FAERS Safety Report 5894247-5 (Version None)
Quarter: 2008Q3

REPORT INFORMATION
  Report Type: 
  Country: None (occurrence: None)
  Receive Date: 20080923
  Receipt Date: 20080312
  Transmission Date: 20090109
  Serious: No
  Sender: FDA-Public Use
  Company Number: US-ASTRAZENECA-2008UW04950

PATIENT
  Age: 208 Month
  Sex: Male
  Weight: 79.5 kg

DRUGS (5)
  1. SEROQUEL [Suspect]
     Indication: BIPOLAR DISORDER
     Route: 048
     Dates: start: 20040101
  2. PROVIGIL [Suspect]
     Indication: BIPOLAR DISORDER
     Route: 048
     Dates: start: 20040101
  3. PROVIGIL [Suspect]
     Indication: ATTENTION DEFICIT/HYPERACTIVITY DISORDER
     Route: 048
     Dates: start: 20040101
  4. LAMICTAL [Suspect]
     Dosage: 100MG QAM/200MG QPM
     Route: 048
     Dates: start: 20040101
  5. LITHIUM [Suspect]
     Indication: BIPOLAR DISORDER
     Dosage: 300MG QAM/600MG QPM
     Route: 048
     Dates: start: 20040101

REACTIONS (2)
  - DENTAL CARIES [None]
  - DRUG INTERACTION [None]
